FAERS Safety Report 10979398 (Version 1)
Quarter: 2015Q2

REPORT INFORMATION
  Report Type: Spontaneous
  Country: US (occurrence: US)
  Receive Date: 20150402
  Receipt Date: 20150402
  Transmission Date: 20150821
  Serious: No
  Sender: FDA-Public Use
  Company Number: US-VERTEX PHARMACEUTICALS-2015-000935

PATIENT
  Age: 39 Year
  Sex: Female

DRUGS (8)
  1. BACTRIM DS [Concomitant]
     Active Substance: SULFAMETHOXAZOLE\TRIMETHOPRIM
  2. TOBI [Concomitant]
     Active Substance: TOBRAMYCIN
  3. KALYDECO [Suspect]
     Active Substance: IVACAFTOR
     Indication: CYSTIC FIBROSIS
     Dosage: 150 MG, BID
     Route: 065
     Dates: start: 201302
  4. ULTRASE [Concomitant]
     Active Substance: PANCRELIPASE
  5. HYPERSAL [Concomitant]
  6. AQUASOL [Concomitant]
  7. PULMOZYME [Concomitant]
     Active Substance: DORNASE ALFA
  8. COLESTID [Concomitant]
     Active Substance: COLESTIPOL HYDROCHLORIDE

REACTIONS (1)
  - Infective pulmonary exacerbation of cystic fibrosis [Unknown]

NARRATIVE: CASE EVENT DATE: 201503
